FAERS Safety Report 9300341 (Version 3)
Quarter: 2013Q3

REPORT INFORMATION
  Report Type: Spontaneous
  Country: US (occurrence: US)
  Receive Date: 20130521
  Receipt Date: 20130702
  Transmission Date: 20140515
  Serious: No
  Sender: FDA-Public Use
  Company Number: US-ROXANE LABORATORIES, INC.-2013-RO-00814RO

PATIENT
  Sex: Male

DRUGS (5)
  1. PREDNISONE [Suspect]
     Indication: BRONCHITIS
     Dosage: 20 MG
     Route: 048
     Dates: start: 20130511, end: 20130515
  2. PREDNISONE [Suspect]
     Dosage: 60 MG
     Route: 048
     Dates: start: 20130524
  3. PREDNISONE [Suspect]
     Dosage: 60 MG
     Route: 048
     Dates: start: 20130517
  4. PREDNISONE [Concomitant]
     Route: 048
  5. ALBUTEROL [Concomitant]

REACTIONS (6)
  - Dyspnoea [Not Recovered/Not Resolved]
  - Wheezing [Not Recovered/Not Resolved]
  - Drug ineffective [Not Recovered/Not Resolved]
  - Dyspnoea [Unknown]
  - Chest discomfort [Unknown]
  - Product quality issue [Not Recovered/Not Resolved]
